FAERS Safety Report 13745180 (Version 3)
Quarter: 2017Q3

REPORT INFORMATION
  Report Type: Spontaneous
  Country: US (occurrence: US)
  Receive Date: 20170712
  Receipt Date: 20170828
  Transmission Date: 20171127
  Serious: Yes (Other)
  Sender: FDA-Public Use
  Company Number: US-GLENMARK PHARMACEUTICALS-2017GMK028118

PATIENT

DRUGS (1)
  1. MUPIROCIN. [Suspect]
     Active Substance: MUPIROCIN
     Indication: PRODUCT USED FOR UNKNOWN INDICATION
     Dosage: UNK
     Route: 045
     Dates: start: 20170628

REACTIONS (10)
  - Dyspnoea [Not Recovered/Not Resolved]
  - Dry throat [Unknown]
  - Nasal mucosal disorder [Not Recovered/Not Resolved]
  - Nasal inflammation [Not Recovered/Not Resolved]
  - Nasal dryness [Unknown]
  - Chest X-ray abnormal [Unknown]
  - Product label issue [Unknown]
  - Drug administered at inappropriate site [Unknown]
  - Accidental exposure to product [Unknown]
  - Nasal septum disorder [Unknown]
